FAERS Safety Report 10256495 (Version 1)
Quarter: 2014Q2

REPORT INFORMATION
  Report Type: Report from Study
  Country: FR (occurrence: FR)
  Receive Date: 20140624
  Receipt Date: 20140624
  Transmission Date: 20141212
  Serious: Yes (Hospitalization, Other)
  Sender: FDA-Public Use
  Company Number: FR-JNJFOC-20130404511

PATIENT
  Age: 64 Year
  Sex: Male
  Weight: 100 kg

DRUGS (6)
  1. RIVAROXABAN [Suspect]
     Indication: ATRIAL FIBRILLATION
     Route: 048
     Dates: start: 20121101
  2. RIVAROXABAN [Suspect]
     Indication: CEREBROVASCULAR ACCIDENT PROPHYLAXIS
     Route: 048
     Dates: start: 20121101
  3. SITAGLIPTIN [Concomitant]
     Dates: start: 20060903
  4. FUROSEMIDE [Concomitant]
     Dates: start: 20060903
  5. AMLOR [Concomitant]
     Dates: start: 20030903
  6. ALDACTONE [Concomitant]
     Dates: start: 20060903

REACTIONS (2)
  - Colitis ischaemic [Not Recovered/Not Resolved]
  - Drug ineffective [Unknown]
